FAERS Safety Report 17225555 (Version 1)
Quarter: 2020Q1

REPORT INFORMATION
  Report Type: Spontaneous
  Country: US (occurrence: US)
  Receive Date: 20200102
  Receipt Date: 20200102
  Transmission Date: 20200409
  Serious: No
  Sender: FDA-Public Use
  Company Number: US-ASTRAZENECA-2019SF74304

PATIENT
  Sex: Female
  Weight: 79.8 kg

DRUGS (2)
  1. LYNPARZA [Suspect]
     Active Substance: OLAPARIB
     Route: 048
  2. IBRANCE [Suspect]
     Active Substance: PALBOCICLIB
     Dosage: DOSAGE UNKNOWN
     Route: 048

REACTIONS (3)
  - Cough [Not Recovered/Not Resolved]
  - Dizziness [Unknown]
  - Pneumonia [Unknown]
